FAERS Safety Report 5029417-1 (Version None)
Quarter: 2006Q2

REPORT INFORMATION
  Report Type: 
  Country: None (occurrence: None)
  Receive Date: 20060613
  Receipt Date: 20060601
  Transmission Date: 20061013
  Serious: Yes (Other)
  Sender: FDA-Public Use
  Company Number: 2006044639

PATIENT
  Age: 17 Year
  Sex: Female

DRUGS (3)
  1. DEPO-PROVERA [Suspect]
     Indication: CONTRACEPTION
     Dosage: (1ST INJECTION), INTRAMUSCULAR - SEE IMAGE
     Route: 030
     Dates: start: 20050606, end: 20050606
  2. DEPO-PROVERA [Suspect]
     Indication: CONTRACEPTION
     Dosage: (1ST INJECTION), INTRAMUSCULAR - SEE IMAGE
     Route: 030
     Dates: start: 20050830, end: 20050830
  3. DEPO-PROVERA [Suspect]
     Indication: CONTRACEPTION
     Dosage: (1ST INJECTION), INTRAMUSCULAR - SEE IMAGE
     Route: 030
     Dates: start: 20060316, end: 20060316

REACTIONS (4)
  - ABORTION SPONTANEOUS [None]
  - DRUG EXPOSURE DURING PREGNANCY [None]
  - INAPPROPRIATE SCHEDULE OF DRUG ADMINISTRATION [None]
  - PREGNANCY WITH INJECTABLE CONTRACEPTIVE [None]
